FAERS Safety Report 23241165 (Version 2)
Quarter: 2023Q4

REPORT INFORMATION
  Report Type: Report from Study
  Country: US (occurrence: US)
  Receive Date: 20231129
  Receipt Date: 20231205
  Transmission Date: 20240109
  Serious: Yes (Hospitalization, Other)
  Sender: FDA-Public Use
  Company Number: US-002147023-NVSC2023US018197

PATIENT
  Age: 64 Year
  Sex: Male
  Weight: 120.2 kg

DRUGS (20)
  1. ILARIS [Suspect]
     Active Substance: CANAKINUMAB
     Indication: Pancreatic carcinoma metastatic
     Dosage: 250 MG, QMO
     Route: 058
     Dates: start: 20220830
  2. ILARIS [Suspect]
     Active Substance: CANAKINUMAB
     Dosage: 250 MG, QMO
     Route: 058
     Dates: start: 20221229, end: 20230116
  3. ILARIS [Suspect]
     Active Substance: CANAKINUMAB
     Dosage: 250 MG
     Route: 058
     Dates: start: 20230202
  4. GEMCITABINE [Suspect]
     Active Substance: GEMCITABINE
     Indication: Pancreatic carcinoma metastatic
     Dosage: 2000 MG (THREE WEEKS ON, 1 WEEK OFF)
     Route: 042
     Dates: start: 20220830
  5. GEMCITABINE [Suspect]
     Active Substance: GEMCITABINE
     Dosage: 1600 MG, THREE TIMES A MONTH (CONCENTRATION 1000 MILLIGRAM/SQ. METER)
     Route: 042
  6. GEMCITABINE [Suspect]
     Active Substance: GEMCITABINE
     Dosage: 1600 MG, THREE TIMES A MONTH (CONCENTRATION 1000 MILLIGRAM/SQ. METER)
     Route: 042
     Dates: start: 20230113
  7. GEMCITABINE [Suspect]
     Active Substance: GEMCITABINE
     Dosage: 1600 MG, THREE TIMES A MONTH (CONCENTRATION 1000 MILLIGRAM/SQ. METER)
     Route: 042
     Dates: end: 20230116
  8. GEMCITABINE [Suspect]
     Active Substance: GEMCITABINE
     Dosage: 1600 MG, THREE TIMES A MONTH (CONCENTRATION 1000 MILLIGRAM/SQ. METER)
     Route: 042
     Dates: start: 20230202
  9. PACLITAXEL [Suspect]
     Active Substance: PACLITAXEL
     Indication: Pancreatic carcinoma metastatic
     Dosage: 250 MG, THREE TIMES A MONTH
     Route: 042
     Dates: start: 20220830
  10. PACLITAXEL [Suspect]
     Active Substance: PACLITAXEL
     Dosage: 200 MG, THREE WEEKS ON, 1 WEEK OFF
     Route: 042
     Dates: start: 20230113
  11. PACLITAXEL [Suspect]
     Active Substance: PACLITAXEL
     Dosage: 200 MG, THREE WEEKS ON, 1 WEEK OFF
     Route: 042
     Dates: end: 20230116
  12. PACLITAXEL [Suspect]
     Active Substance: PACLITAXEL
     Dosage: 200 MG, THREE WEEKS ON, 1 WEEK OFF
     Route: 042
     Dates: start: 20230202
  13. MAXZIDE [Concomitant]
     Active Substance: HYDROCHLOROTHIAZIDE\TRIAMTERENE
     Indication: Product used for unknown indication
     Dosage: UNK
     Route: 065
     Dates: start: 20220803
  14. ZOCOR [Concomitant]
     Active Substance: SIMVASTATIN
     Indication: Product used for unknown indication
     Dosage: UNK
     Route: 065
     Dates: start: 20220513
  15. CREON [Concomitant]
     Active Substance: PANCRELIPASE AMYLASE\PANCRELIPASE LIPASE\PANCRELIPASE PROTEASE
     Indication: Adenocarcinoma pancreas
     Dosage: 24000- 76000-120000 CPDR Q4D
     Route: 048
     Dates: start: 20220727
  16. GLUCOTROL XL [Concomitant]
     Active Substance: GLIPIZIDE
     Indication: Product used for unknown indication
     Dosage: UNK
     Route: 065
     Dates: start: 20220803
  17. NORCO [Concomitant]
     Active Substance: ACETAMINOPHEN\HYDROCODONE BITARTRATE
     Indication: Product used for unknown indication
     Dosage: UNK
     Route: 065
     Dates: start: 20200702
  18. COMPAZINE [Concomitant]
     Active Substance: PROCHLORPERAZINE MALEATE
     Indication: Product used for unknown indication
     Dosage: UNK
     Route: 065
     Dates: start: 20220830
  19. POLYETHYLENE GLYCOL 3350 [Concomitant]
     Active Substance: POLYETHYLENE GLYCOL 3350
     Indication: Product used for unknown indication
     Dosage: UNK
     Route: 065
     Dates: start: 20220830
  20. HUMALOG [Concomitant]
     Active Substance: INSULIN LISPRO
     Indication: Type 2 diabetes mellitus
     Dosage: 30 UNITS OF LONG ACTING INSULIN IN THE MORNING AND AT NIGHT (KWIKPEN)
     Route: 065
     Dates: start: 20220622, end: 20220904

REACTIONS (18)
  - Hypertransaminasaemia [Recovered/Resolved]
  - Abdominal pain upper [Unknown]
  - Hypoglycaemia [Recovered/Resolved]
  - Cough [Unknown]
  - Dyspnoea [Unknown]
  - Metastases to lung [Unknown]
  - Gallbladder enlargement [Unknown]
  - Metastases to liver [Unknown]
  - Ocular icterus [Unknown]
  - Jaundice [Unknown]
  - Pyrexia [Unknown]
  - Chromaturia [Unknown]
  - Lung opacity [Unknown]
  - Pulmonary mass [Unknown]
  - Vomiting [Recovered/Resolved]
  - Dizziness [Unknown]
  - Vertigo [Unknown]
  - Product use in unapproved indication [Unknown]

NARRATIVE: CASE EVENT DATE: 20220905
